FAERS Safety Report 7189879-0 (Version None)
Quarter: 2010Q4

REPORT INFORMATION
  Report Type: 
  Country: None (occurrence: None)
  Receive Date: 20101223
  Receipt Date: 20101213
  Transmission Date: 20110411
  Serious: Yes (Hospitalization, Other)
  Sender: FDA-Public Use
  Company Number: US-ELI_LILLY_AND_COMPANY-US201007007222

PATIENT
  Sex: Female

DRUGS (14)
  1. FORTEO [Suspect]
     Indication: OSTEOPOROSIS
     Dosage: 20 UG, DAILY (1/D)
     Route: 058
     Dates: start: 20100612
  2. GLIPIZIDE [Concomitant]
  3. KLOR-CON [Concomitant]
     Dosage: 10 MEQ, UNK
  4. FOLIC ACID [Concomitant]
     Dosage: 1 MG, UNK
  5. AMLODIPINE BESYLATE [Concomitant]
     Dosage: 2.5 MG, UNK
  6. OMEPRAZOLE [Concomitant]
     Dosage: 20 MG, UNK
  7. LASIX [Concomitant]
     Dosage: 40 MG, 2/D
  8. ATIVAN [Concomitant]
     Dosage: UNK, UNK
  9. ACETAMINOPHEN AND HYDROCODONE BITARTRATE [Concomitant]
     Dosage: 500 MG, AS NEEDED
  10. SPIRIVA [Concomitant]
     Dosage: UNK, UNK
  11. ADVAIR [Concomitant]
     Dosage: UNK, UNK
  12. SENNA [Concomitant]
     Dosage: UNK, UNK
  13. VITAMIN B-12 [Concomitant]
  14. PROCRIT [Concomitant]
     Dosage: UNK, UNK

REACTIONS (7)
  - CARDIAC DISORDER [None]
  - CARDIAC FAILURE CONGESTIVE [None]
  - CHRONIC OBSTRUCTIVE PULMONARY DISEASE [None]
  - LUNG DISORDER [None]
  - MULTI-ORGAN FAILURE [None]
  - MYELODYSPLASTIC SYNDROME [None]
  - RENAL DISORDER [None]
